FAERS Safety Report 6407850-0 (Version None)
Quarter: 2009Q4

REPORT INFORMATION
  Report Type: 
  Country: None (occurrence: None)
  Receive Date: 20091020
  Receipt Date: 20090921
  Transmission Date: 20100525
  Serious: Yes (Other)
  Sender: FDA-Public Use
  Company Number: US-MERCK-0907USA05806

PATIENT
  Age: 60 Year
  Sex: Female

DRUGS (2)
  1. FOSAMAX [Suspect]
     Indication: SPINAL DISORDER
     Route: 048
     Dates: start: 20030101, end: 20070101
  2. FOSAMAX [Suspect]
     Route: 048
     Dates: start: 20030701, end: 20080101

REACTIONS (5)
  - GINGIVAL BLEEDING [None]
  - GINGIVAL DISORDER [None]
  - GINGIVITIS [None]
  - IMPAIRED HEALING [None]
  - OSTEONECROSIS [None]
